FAERS Safety Report 8432761-9 (Version None)
Quarter: 2012Q2

REPORT INFORMATION
  Report Type: 
  Country: None (occurrence: None)
  Receive Date: 20120323
  Receipt Date: 20111215
  Transmission Date: 20120825
  Serious: Yes (Other)
  Sender: FDA-Public Use
  Company Number: 163-21880-11071533

PATIENT
  Age: 72 Year
  Sex: Female
  Weight: 98.8842 kg

DRUGS (13)
  1. LASIX [Concomitant]
  2. NORVASC [Concomitant]
  3. ASA (ACETYLSALICYILC ACID) [Concomitant]
  4. PHENERGAN HCL [Concomitant]
  5. NEURONTIN [Concomitant]
  6. REVLIMID [Suspect]
     Indication: MULTIPLE MYELOMA
     Dosage: 25 MG, DAILY FOR 21 DAYS, PO ; 15 MG, DAILY, PO
     Route: 048
     Dates: start: 20110405
  7. REVLIMID [Suspect]
     Indication: MULTIPLE MYELOMA
     Dosage: 25 MG, DAILY FOR 21 DAYS, PO ; 15 MG, DAILY, PO
     Route: 048
     Dates: start: 20080815
  8. ATIVAN [Concomitant]
  9. POTASSIUM CHLORIDE [Concomitant]
  10. ALLOPURINOL [Concomitant]
  11. LOMOTIL [Concomitant]
  12. THYROID TAB [Concomitant]
  13. MAGNESIUM (MAGNESIUM) [Concomitant]

REACTIONS (1)
  - THROMBOPHLEBITIS SUPERFICIAL [None]
